FAERS Safety Report 20327643 (Version 2)
Quarter: 2024Q3

REPORT INFORMATION
  Report Type: Report from Study
  Country: US (occurrence: US)
  Receive Date: 20220112
  Receipt Date: 20240826
  Transmission Date: 20241017
  Serious: Yes (Other)
  Sender: ROCHE
  Company Number: US-ROCHE-2066970

PATIENT
  Age: 66 Year
  Sex: Female
  Weight: 78.93 kg

DRUGS (30)
  1. ACTEMRA [Suspect]
     Active Substance: TOCILIZUMAB
     Indication: Rheumatoid arthritis
     Route: 058
  2. ACTEMRA [Suspect]
     Active Substance: TOCILIZUMAB
     Indication: Sjogren^s syndrome
     Route: 058
     Dates: start: 201711
  3. PREDNISONE [Concomitant]
     Active Substance: PREDNISONE
     Indication: Weight increased
     Route: 048
  4. PREDNISONE [Concomitant]
     Active Substance: PREDNISONE
     Route: 048
  5. PREDNISONE [Concomitant]
     Active Substance: PREDNISONE
     Route: 048
     Dates: start: 20170124
  6. VITAMIN C [Concomitant]
     Active Substance: ASCORBIC ACID
     Dosage: 1600-2000+ MG PO DAILY
     Route: 048
  7. ZINC ACETATE [Concomitant]
     Active Substance: ZINC ACETATE
     Dosage: 25-100 MG PO DAILY
     Route: 048
     Dates: start: 202010
  8. HYDROXYCHLOROQUINE [Concomitant]
     Active Substance: HYDROXYCHLOROQUINE
     Indication: Rheumatoid arthritis
     Dosage: 200 MG PO TWICE DAILY
     Route: 048
     Dates: start: 2014
  9. VITAMIN D3 [Concomitant]
     Active Substance: CHOLECALCIFEROL
  10. MAGNESIUM CITRATE [Concomitant]
     Active Substance: MAGNESIUM CITRATE
  11. ARMOUR THYROID [Concomitant]
     Active Substance: THYROID, PORCINE
     Dosage: TAKE 1 TABLET EVERY OTHER DAY, ALTERNATING WITH ARMOUR THYROID 90 MG
     Route: 048
  12. ARMOUR THYROID [Concomitant]
     Active Substance: THYROID, PORCINE
     Dosage: TAKE 1 TABLET EVERY OTHER DAY, ALTERNATING WITH ARMOUR THYROID 60 MG
     Route: 048
  13. OMEGA 3 [Concomitant]
     Active Substance: CAPSAICIN
  14. COENZYME Q10 [Concomitant]
     Active Substance: DIETARY SUPPLEMENT\UBIDECARENONE
  15. VITAMIN K1 [Concomitant]
     Active Substance: PHYTONADIONE
  16. VITAMIN B COMPLEX [Concomitant]
     Active Substance: CYANOCOBALAMIN\DEXPANTHENOL\NIACINAMIDE\PYRIDOXINE HYDROCHLORIDE\RIBOFLAVIN 5^-PHOSPHATE SODIUM\THIA
  17. PLAQUENIL [Concomitant]
     Active Substance: HYDROXYCHLOROQUINE SULFATE
  18. ALBUTEROL SULFATE [Concomitant]
     Active Substance: ALBUTEROL SULFATE
     Dosage: TAKE 2 PUFFS BY INHALATION EVERY 4 HOURS AS NEEDED FOR WHEEZING
  19. ASCORBIC ACID [Concomitant]
     Active Substance: ASCORBIC ACID
     Dosage: TAKE 1,000 MG BY MOUTH DAILY.
     Route: 048
  20. CHOLECALCIFEROL [Concomitant]
     Active Substance: CHOLECALCIFEROL
     Dosage: TAKE 5,000 UNITS BY MOUTH DAILY.
     Route: 048
  21. VALIUM [Concomitant]
     Active Substance: DIAZEPAM
  22. FLONASE [Concomitant]
     Active Substance: FLUTICASONE PROPIONATE
     Dosage: ADMINISTER 1 SPARY INTO EACH NOSTRIL TWICE DAILY
  23. PLAQUENIL [Concomitant]
     Active Substance: HYDROXYCHLOROQUINE SULFATE
     Dosage: TAKE 1 TABLET BY MOUTH TWICE DAILY
     Route: 048
  24. CLARITIN [Concomitant]
     Active Substance: LORATADINE
     Dosage: TAKE 10 MG BY MOUTH DAILY.
     Route: 048
  25. MAGNESIUM [Concomitant]
     Active Substance: MAGNESIUM
     Route: 048
  26. MENAQUINONE-7 [Concomitant]
     Route: 048
  27. PROGESTERONE [Concomitant]
     Active Substance: PROGESTERONE
     Dosage: APPLY TO SKIN.
  28. OMEGA-3 FATTY ACIDS [Concomitant]
     Active Substance: OMEGA-3 FATTY ACIDS
     Dosage: TAKE 2,400 MG BY MOUTH DAILY.
     Route: 048
  29. UBIQUINOL [Concomitant]
     Active Substance: UBIQUINOL
     Dosage: TAKE 200 MG BY MOUTH DAILY.
     Route: 048
  30. ZINC SULFATE [Concomitant]
     Active Substance: ZINC SULFATE
     Dosage: TAKE 50 MG BY MOUTH DAILY.
     Route: 048

REACTIONS (10)
  - Weight increased [Not Recovered/Not Resolved]
  - COVID-19 [Recovered/Resolved]
  - COVID-19 pneumonia [Not Recovered/Not Resolved]
  - Oxygen saturation decreased [Unknown]
  - Lung disorder [Unknown]
  - Oropharyngeal pain [Recovered/Resolved]
  - Fatigue [Recovered/Resolved]
  - Cough [Recovered/Resolved]
  - Nasal congestion [Recovered/Resolved]
  - Diarrhoea [Recovered/Resolved]

NARRATIVE: CASE EVENT DATE: 20171101
